FAERS Safety Report 16747396 (Version 4)
Quarter: 2020Q1

REPORT INFORMATION
  Report Type: Report from Study
  Country: US (occurrence: US)
  Receive Date: 20190827
  Receipt Date: 20200324
  Transmission Date: 20200409
  Serious: Yes (Hospitalization)
  Sender: FDA-Public Use
  Company Number: US-ACTELION-A-US2019-194575

PATIENT
  Age: 6 Year
  Sex: Male

DRUGS (27)
  1. VITAMIN D3 [Concomitant]
     Active Substance: CHOLECALCIFEROL
     Dosage: 5 ML, OD
     Dates: start: 20170224
  2. CALCIUM [Concomitant]
     Active Substance: CALCIUM
  3. ALBUTEROL. [Concomitant]
     Active Substance: ALBUTEROL
  4. ZAVESCA [Suspect]
     Active Substance: MIGLUSTAT
     Indication: TAY-SACHS DISEASE
  5. BACLOFEN. [Concomitant]
     Active Substance: BACLOFEN
     Dosage: 1 ML, BID
     Dates: start: 20170224
  6. PYRIDOXINE [Concomitant]
     Active Substance: PYRIDOXINE
  7. SIMETHICONE (DIMETHICONE) [Concomitant]
     Active Substance: DIMETHICONE
  8. DOCUSATE [Concomitant]
     Active Substance: DOCUSATE
  9. VITAMIN C [Concomitant]
     Active Substance: ASCORBIC ACID
  10. CULTURELLE [Concomitant]
     Active Substance: LACTOBACILLUS RHAMNOSUS
  11. ZAVESCA [Suspect]
     Active Substance: MIGLUSTAT
     Indication: FABRY^S DISEASE
     Dosage: 100 MG, TID
     Route: 048
     Dates: start: 20170302
  12. MANNITOL. [Concomitant]
     Active Substance: MANNITOL
     Dosage: 315 UNK, TID
     Dates: start: 20181030
  13. KEPPRA [Concomitant]
     Active Substance: LEVETIRACETAM
     Dosage: 2.8 ML TWICE A WEEK
     Dates: start: 20170224
  14. TRIAMCINOLONE [Concomitant]
     Active Substance: TRIAMCINOLONE
     Dosage: 1 APP PTUTV
     Route: 061
     Dates: start: 20170224
  15. VITAMIN B6 [Concomitant]
     Active Substance: PYRIDOXINE HYDROCHLORIDE
     Dosage: UNK, BID
     Dates: start: 20170224
  16. OMEPRAZOLE. [Concomitant]
     Active Substance: OMEPRAZOLE
  17. BACLOFEN. [Concomitant]
     Active Substance: BACLOFEN
     Dosage: 1 ML, TWICE A WEEK
  18. HYDROXYZINE [Concomitant]
     Active Substance: HYDROXYZINE HYDROCHLORIDE
  19. MAGNESIUM HYDROXIDE. [Concomitant]
     Active Substance: MAGNESIUM HYDROXIDE
  20. CANNABIDIOL [Concomitant]
     Active Substance: CANNABIDIOL
     Dosage: 0.25 ML, BID
     Dates: start: 20170224
  21. TRILEPTAL [Concomitant]
     Active Substance: OXCARBAZEPINE
     Dosage: 1.5 ML, BID
     Route: 048
     Dates: start: 20170224
  22. MIRALAX [Concomitant]
     Active Substance: POLYETHYLENE GLYCOL 3350
     Dosage: 1 CAPFUL , OD
     Dates: start: 20170224
  23. KEPPRA [Concomitant]
     Active Substance: LEVETIRACETAM
     Dosage: 2.8 ML, BID
     Dates: start: 20170224
  24. VITAMIN D [Concomitant]
     Active Substance: VITAMIN D NOS
  25. DIAZEPAM. [Concomitant]
     Active Substance: DIAZEPAM
  26. IBUPROFEN. [Concomitant]
     Active Substance: IBUPROFEN
  27. OXCARBAZEPINE. [Concomitant]
     Active Substance: OXCARBAZEPINE

REACTIONS (9)
  - Pyrexia [Unknown]
  - Skin laceration [Unknown]
  - Malaise [Unknown]
  - Oxygen saturation decreased [Unknown]
  - Dyspnoea [Unknown]
  - Arthralgia [Unknown]
  - Upper respiratory tract infection [Unknown]
  - Pneumonia aspiration [Unknown]
  - Respiratory distress [Unknown]

NARRATIVE: CASE EVENT DATE: 2019
